FAERS Safety Report 5795125-2 (Version None)
Quarter: 2008Q2

REPORT INFORMATION
  Report Type: 
  Country: None (occurrence: None)
  Receive Date: 20080630
  Receipt Date: 20080428
  Transmission Date: 20081010
  Serious: No
  Sender: FDA-Public Use
  Company Number: US-BRISTOL-MYERS SQUIBB COMPANY-14167555

PATIENT
  Age: 71 Year
  Sex: Female
  Weight: 107 kg

DRUGS (4)
  1. ORENCIA [Suspect]
     Indication: RHEUMATOID ARTHRITIS
     Dates: start: 20080401
  2. SYNTHROID [Concomitant]
  3. LEXAPRO [Concomitant]
  4. NITROGLYCERIN [Concomitant]

REACTIONS (4)
  - ASTHENIA [None]
  - CHROMATURIA [None]
  - FATIGUE [None]
  - SKIN ODOUR ABNORMAL [None]
